FAERS Safety Report 7137691-0 (Version None)
Quarter: 2010Q4

REPORT INFORMATION
  Report Type: 
  Country: None (occurrence: None)
  Receive Date: 20101206
  Receipt Date: 20101125
  Transmission Date: 20110411
  Serious: Yes (Hospitalization)
  Sender: FDA-Public Use
  Company Number: JP-JNJFOC-20101004443

PATIENT
  Sex: Female
  Weight: 42 kg

DRUGS (28)
  1. REMICADE [Suspect]
     Indication: RHEUMATOID ARTHRITIS
     Dosage: RECEIVED 1 INFUSION TOTAL
     Route: 042
  2. REMICADE [Suspect]
     Dosage: RECEIVED 1 INFUSION TOTAL
     Route: 042
  3. REMICADE [Suspect]
     Dosage: RECEIVED 1 INFUSION TOTAL
     Route: 042
  4. REMICADE [Suspect]
     Dosage: RECEIVED 1 INFUSION TOTAL
     Route: 042
  5. REMICADE [Suspect]
     Dosage: RECEIVED 1 INFUSION TOTAL
     Route: 042
  6. REMICADE [Suspect]
     Dosage: RECEIVED 1 INFUSION TOTAL
     Route: 042
  7. REMICADE [Suspect]
     Dosage: RECEIVED 1 INFUSION TOTAL
     Route: 042
  8. REMICADE [Suspect]
     Dosage: RECEIVED 1 INFUSION TOTAL
     Route: 042
  9. REMICADE [Suspect]
     Dosage: RECEIVED 1 INFUSION TOTAL
     Route: 042
  10. REMICADE [Suspect]
     Dosage: RECEIVED 1 INFUSION TOTAL
     Route: 042
  11. REMICADE [Suspect]
     Dosage: RECEIVED 1 INFUSION TOTAL
     Route: 042
  12. REMICADE [Suspect]
     Dosage: RECEIVED 1 INFUSION TOTAL
     Route: 042
  13. REMICADE [Suspect]
     Dosage: RECEIVED 1 INFUSION TOTAL
     Route: 042
  14. REMICADE [Suspect]
     Dosage: RECEIVED 1 INFUSION TOTAL
     Route: 042
  15. REMICADE [Suspect]
     Dosage: RECEIVED 1 INFUSION TOTAL
     Route: 042
  16. REMICADE [Suspect]
     Dosage: RECEIVED 1 INFUSION TOTAL
     Route: 042
  17. REMICADE [Suspect]
     Dosage: RECEIVED 1 INFUSION TOTAL
     Route: 042
  18. REMICADE [Suspect]
     Dosage: RECEIVED 1 INFUSION TOTAL
     Route: 042
  19. METHOTREXATE [Suspect]
     Indication: RHEUMATOID ARTHRITIS
     Route: 048
  20. PREDONINE [Suspect]
     Indication: RHEUMATOID ARTHRITIS
     Route: 048
  21. AMLODIPINE [Concomitant]
     Indication: HYPERTENSION
     Route: 048
  22. AMARYL [Concomitant]
     Indication: DIABETES MELLITUS
     Route: 048
  23. MYSLEE [Concomitant]
     Indication: INSOMNIA
     Route: 048
  24. MUCOSTA [Concomitant]
     Indication: GASTRITIS
     Route: 048
  25. DIOVAN [Concomitant]
     Indication: HYPERTENSION
     Route: 048
  26. METFORMIN HYDROCHLORIDE [Concomitant]
     Indication: HYPERLIPIDAEMIA
     Route: 048
  27. FERROUS CITRATE [Concomitant]
     Indication: ANAEMIA
     Route: 048
  28. METFORMIN HCL [Concomitant]
     Indication: DIABETES MELLITUS
     Route: 048

REACTIONS (5)
  - LIVER DISORDER [None]
  - PERITONEAL TUBERCULOSIS [None]
  - PLEURAL EFFUSION [None]
  - PULMONARY TUBERCULOSIS [None]
  - TUBERCULOSIS GASTROINTESTINAL [None]
